FAERS Safety Report 5845952-8 (Version None)
Quarter: 2008Q3

REPORT INFORMATION
  Report Type: 
  Country: None (occurrence: None)
  Receive Date: 20080814
  Receipt Date: 20080805
  Transmission Date: 20090109
  Serious: Yes (Other)
  Sender: FDA-Public Use
  Company Number: US-PFIZER INC-2008065774

PATIENT
  Sex: Female
  Weight: 45.4 kg

DRUGS (1)
  1. XALATAN [Suspect]
     Indication: GLAUCOMA
     Dosage: TEXT:QHS

REACTIONS (3)
  - BLADDER DISORDER [None]
  - EYE DISORDER [None]
  - WEIGHT DECREASED [None]
